FAERS Safety Report 7301232-5 (Version None)
Quarter: 2010Q4

REPORT INFORMATION
  Report Type: 
  Country: None (occurrence: None)
  Receive Date: 20101229
  Receipt Date: 20100921
  Transmission Date: 20110411
  Serious: No
  Sender: FDA-Public Use
  Company Number: 1000016396

PATIENT
  Age: 50 Year
  Sex: Female

DRUGS (1)
  1. BYSTOLIC [Suspect]
     Dosage: (5 MG), ORAL
     Route: 048

REACTIONS (1)
  - ADVERSE EVENT [None]
